FAERS Safety Report 6861009-1 (Version None)
Quarter: 2010Q3

REPORT INFORMATION
  Report Type: 
  Country: None (occurrence: None)
  Receive Date: 20100720
  Receipt Date: 20100713
  Transmission Date: 20110219
  Serious: Yes (Other)
  Sender: FDA-Public Use
  Company Number: GB-JNJFOC-20100701235

PATIENT
  Age: 17 Year
  Sex: Female
  Weight: 89 kg

DRUGS (4)
  1. ACETAMINOPHEN AND CODEINE PHOSPHATE [Suspect]
     Indication: MIGRAINE
     Route: 065
  2. HUMAN PAPILLOMA VIRUS VACCINE [Suspect]
     Indication: PROPHYLAXIS
     Route: 065
  3. HUMAN PAPILLOMA VIRUS VACCINE [Suspect]
     Route: 065
  4. NULYTELY [Suspect]
     Indication: CONSTIPATION
     Route: 065

REACTIONS (2)
  - ABORTION SPONTANEOUS [None]
  - DRUG EXPOSURE DURING PREGNANCY [None]
